FAERS Safety Report 9967361 (Version 2)
Quarter: 2014Q1

REPORT INFORMATION
  Report Type: Report from Study
  Country: US (occurrence: US)
  Receive Date: 20140305
  Receipt Date: 20140305
  Transmission Date: 20141002
  Serious: No
  Sender: FDA-Public Use
  Company Number: US-ABBVIE-13P-163-1111963-00

PATIENT
  Age: 49 Year
  Sex: Female
  Weight: 77.18 kg

DRUGS (9)
  1. HUMIRA [Suspect]
     Indication: CROHN^S DISEASE
     Route: 058
     Dates: start: 20130503
  2. MAGNESIUM [Concomitant]
     Indication: MUSCLE SPASMS
     Dosage: DAILY
  3. APRISO [Concomitant]
     Indication: PRODUCT USED FOR UNKNOWN INDICATION
  4. NEXIUM [Concomitant]
     Indication: PRODUCT USED FOR UNKNOWN INDICATION
     Dosage: DAILY
  5. CALCIUM [Concomitant]
     Indication: PRODUCT USED FOR UNKNOWN INDICATION
     Dosage: DAILY
  6. HORMONES [Concomitant]
     Indication: PRODUCT USED FOR UNKNOWN INDICATION
  7. MILK THISTLE [Concomitant]
     Indication: ABDOMINAL DISTENSION
     Dosage: DAILY
  8. LIBRAX [Concomitant]
     Indication: PRODUCT USED FOR UNKNOWN INDICATION
     Dosage: 5-2.5 MILLIGRAM
  9. PROGESTERONE [Concomitant]
     Indication: PRODUCT USED FOR UNKNOWN INDICATION

REACTIONS (16)
  - Fatigue [Unknown]
  - Fatigue [Unknown]
  - Alopecia [Unknown]
  - Injection site bruising [Unknown]
  - Eye pruritus [Unknown]
  - Erythema of eyelid [Recovering/Resolving]
  - Superficial injury of eye [Recovering/Resolving]
  - Corneal abrasion [Recovering/Resolving]
  - Conjunctival hyperaemia [Recovering/Resolving]
  - Abnormal weight gain [Not Recovered/Not Resolved]
  - Local swelling [Not Recovered/Not Resolved]
  - Arthralgia [Not Recovered/Not Resolved]
  - Dry mouth [Not Recovered/Not Resolved]
  - Oral herpes [Unknown]
  - Eye swelling [Unknown]
  - Asthenia [Unknown]
